FAERS Safety Report 9074144 (Version 1)
Quarter: 2013Q1

REPORT INFORMATION
  Report Type: Report from Study
  Country: AR (occurrence: AR)
  Receive Date: 20130129
  Receipt Date: 20130129
  Transmission Date: 20140127
  Serious: Yes (Hospitalization)
  Sender: FDA-Public Use
  Company Number: AR-SANOFI-AVENTIS-2013SA007417

PATIENT
  Age: 41 Year
  Sex: Male

DRUGS (8)
  1. RIFAMPICIN [Suspect]
     Indication: PULMONARY TUBERCULOSIS
     Route: 065
  2. RIFAMPICIN [Suspect]
     Indication: TUBERCULOSIS
     Route: 065
  3. ISONIAZID [Suspect]
     Indication: PULMONARY TUBERCULOSIS
     Route: 065
  4. ISONIAZID [Suspect]
     Indication: TUBERCULOSIS
     Route: 065
  5. PYRAZINAMIDE [Suspect]
     Indication: PERITONEAL TUBERCULOSIS
     Route: 065
  6. PYRAZINAMIDE [Suspect]
     Indication: TUBERCULOSIS
     Route: 065
  7. ETHAMBUTOL [Concomitant]
     Indication: PULMONARY TUBERCULOSIS
  8. ETHAMBUTOL [Concomitant]
     Indication: TUBERCULOSIS

REACTIONS (8)
  - Drug reaction with eosinophilia and systemic symptoms [Recovering/Resolving]
  - Pyrexia [Recovering/Resolving]
  - Lymphadenopathy [Recovering/Resolving]
  - Eosinophilia [Recovering/Resolving]
  - Hepatitis [Recovering/Resolving]
  - Face oedema [Recovering/Resolving]
  - Rash erythematous [Recovering/Resolving]
  - Erythema multiforme [Recovering/Resolving]
